FAERS Safety Report 15762562 (Version 2)
Quarter: 2019Q1

REPORT INFORMATION
  Report Type: Spontaneous
  Country: BE (occurrence: BE)
  Receive Date: 20181226
  Receipt Date: 20190103
  Transmission Date: 20190417
  Serious: Yes (Hospitalization, Other)
  Sender: FDA-Public Use
  Company Number: BE-MYLANLABS-2018M1095196

PATIENT
  Sex: Male

DRUGS (2)
  1. TRULICITY [Interacting]
     Active Substance: DULAGLUTIDE
     Indication: TYPE 2 DIABETES MELLITUS
     Dosage: 1.5 MILLIGRAM
     Route: 065
     Dates: start: 201712
  2. METFORMIN [Suspect]
     Active Substance: METFORMIN HYDROCHLORIDE
     Indication: PRODUCT USED FOR UNKNOWN INDICATION
     Dosage: 850 MILLIGRAM
     Route: 065

REACTIONS (13)
  - Malaise [Unknown]
  - Decreased appetite [Unknown]
  - Discoloured vomit [Unknown]
  - Weight decreased [Unknown]
  - Constipation [Unknown]
  - Drug intolerance [Unknown]
  - Drug interaction [Unknown]
  - Flatulence [Unknown]
  - Toxicity to various agents [Unknown]
  - Fatigue [Unknown]
  - Gastrooesophageal reflux disease [Unknown]
  - Abdominal distension [Unknown]
  - Dyspepsia [Unknown]
